FAERS Safety Report 5988778-7 (Version None)
Quarter: 2008Q4

REPORT INFORMATION
  Report Type: 
  Country: None (occurrence: None)
  Receive Date: 20081208
  Receipt Date: 20081208
  Transmission Date: 20090506
  Serious: Yes (Life-Threatening, Other)
  Sender: FDA-Public Use
  Company Number: None

PATIENT
  Age: 56 Year
  Sex: Male
  Weight: 99.7913 kg

DRUGS (2)
  1. BUDEPRION XL HCI 150 MG ANCHEN PHARMACEUTICALS [Suspect]
     Indication: DEPRESSION
     Dosage: 150 MG ONCE A BEDTIME PO
     Route: 048
     Dates: start: 20081117, end: 20081124
  2. BUDEPRION XL HCI 150 MG ANCHEN PHARMACEUTICALS [Suspect]
     Indication: SEASONAL AFFECTIVE DISORDER
     Dosage: 150 MG ONCE A BEDTIME PO
     Route: 048
     Dates: start: 20081117, end: 20081124

REACTIONS (4)
  - IMPAIRED WORK ABILITY [None]
  - MENTAL DISORDER [None]
  - PANIC ATTACK [None]
  - PANIC REACTION [None]
